FAERS Safety Report 4338438-3 (Version None)
Quarter: 2004Q2

REPORT INFORMATION
  Report Type: 
  Country: None (occurrence: None)
  Receive Date: 20040409
  Receipt Date: 20040331
  Transmission Date: 20050107
  Serious: No
  Sender: FDA-Public Use
  Company Number: 04P-013-0249908-00

PATIENT
  Age: 41 Year
  Sex: Female

DRUGS (8)
  1. KALETRA [Suspect]
     Indication: HIV INFECTION
     Dosage: 1 DOSAGE FORMS, 8 IN 1 D
     Dates: start: 20010621
  2. FUZEON [Suspect]
     Indication: HIV INFECTION
     Dosage: 180 MG, 1 IN 1 D, SUBCUTANEOUS
     Route: 058
     Dates: start: 20010621, end: 20010820
  3. AMPRENAVIR [Suspect]
     Indication: HIV INFECTION
     Dosage: 1 IN 1 D
     Dates: start: 20010621
  4. EFAVIRENZ [Suspect]
     Indication: HIV INFECTION
     Dosage: 1 IN 1 D
     Dates: start: 20010602
  5. ZOVIRAX [Suspect]
     Indication: HIV INFECTION
     Dosage: 1 IN 1 D
     Dates: start: 20010621
  6. STAVUDINE [Suspect]
     Indication: HIV INFECTION
     Dosage: 1 IN 1 D
     Dates: start: 20010621
  7. ACYCLOVIR [Suspect]
     Indication: HIV INFECTION
     Dosage: 1 IN 1 D
     Dates: start: 19970615
  8. ACYCLOVIR [Concomitant]

REACTIONS (1)
  - ABORTION INDUCED [None]
